FAERS Safety Report 25814816 (Version 1)
Quarter: 2025Q3

REPORT INFORMATION
  Report Type: Spontaneous
  Country: US (occurrence: US)
  Receive Date: 20250918
  Receipt Date: 20250918
  Transmission Date: 20251021
  Serious: No
  Sender: BRISTOL-MYERS SQUIBB COMPANY
  Company Number: US-BRISTOL-MYERS SQUIBB COMPANY-2025-128378

PATIENT
  Age: 32 Year
  Sex: Male

DRUGS (1)
  1. SOTYKTU [Suspect]
     Active Substance: DEUCRAVACITINIB
     Indication: Psoriasis
     Dosage: ONCE DAILY
     Dates: start: 202506

REACTIONS (4)
  - Burning sensation [Unknown]
  - Erythema [Unknown]
  - Pruritus [Unknown]
  - Psoriasis [Unknown]
